FAERS Safety Report 4628996-3 (Version None)
Quarter: 2005Q2

REPORT INFORMATION
  Report Type: 
  Country: None (occurrence: None)
  Receive Date: 20050405
  Receipt Date: 20050405
  Transmission Date: 20051028
  Serious: Yes (Hospitalization)
  Sender: FDA-Public Use
  Company Number: None

PATIENT
  Sex: Male
  Weight: 90.1751 kg

DRUGS (12)
  1. INTRON A [Suspect]
     Indication: MALIGNANT MELANOMA
     Dosage: 40 MU QD MON-FRI INTRAVENOUS
     Route: 042
     Dates: start: 20030929, end: 20031024
  2. INTRON A [Suspect]
     Dosage: 20 MU 3 TIMES/WEEK SUBCUTANEOUS
     Route: 058
     Dates: start: 20031025, end: 20040924
  3. ACETAMINOPHEN [Concomitant]
  4. DOCUSATE [Concomitant]
  5. HYDROCODONE BITARTRATE [Concomitant]
  6. HYDROMORPHONE [Concomitant]
  7. LORAZEPAM [Concomitant]
  8. ONDANSETRON [Concomitant]
  9. PAROXETINE HCL [Concomitant]
  10. SENNOSIDES [Concomitant]
  11. SIMVASTATIN [Concomitant]
  12. TRAZODONE HCL [Concomitant]

REACTIONS (6)
  - CHEST X-RAY ABNORMAL [None]
  - COMPUTERISED TOMOGRAM ABNORMAL [None]
  - CYTOLOGY ABNORMAL [None]
  - FATIGUE [None]
  - LOBAR PNEUMONIA [None]
  - PNEUMONITIS [None]
